FAERS Safety Report 9277427 (Version 2)
Quarter: 2013Q2

REPORT INFORMATION
  Report Type: Report from Study
  Country: DE (occurrence: DE)
  Receive Date: 20130508
  Receipt Date: 20130610
  Transmission Date: 20140414
  Serious: Yes (Hospitalization)
  Sender: FDA-Public Use
  Company Number: DE-BAYER-2011-098398

PATIENT
  Age: 74 Year
  Sex: Male
  Weight: 74 kg

DRUGS (67)
  1. REGORAFENIB [Suspect]
     Indication: COLON CANCER
     Dosage: 160 MG, QD
     Route: 048
     Dates: start: 20100612, end: 20100618
  2. REGORAFENIB [Suspect]
     Indication: COLON CANCER
     Dosage: 160 MG, QD
     Route: 048
     Dates: start: 20100529, end: 20100604
  3. REGORAFENIB [Suspect]
     Indication: COLON CANCER
     Dosage: 160 MG, QD
     Route: 048
     Dates: start: 20100626, end: 20100702
  4. REGORAFENIB [Suspect]
     Indication: COLON CANCER
     Dosage: 160 MG, QD
     Route: 048
     Dates: start: 20100710, end: 20100715
  5. REGORAFENIB [Suspect]
     Indication: COLON CANCER
     Dosage: 160 MG, QD
     Route: 048
     Dates: start: 20100808, end: 20100814
  6. REGORAFENIB [Suspect]
     Indication: COLON CANCER
     Dosage: 160 MG, QD
     Route: 048
     Dates: start: 20100725, end: 20100731
  7. REGORAFENIB [Suspect]
     Indication: COLON CANCER
     Dosage: 160 MG, QD
     Route: 048
     Dates: start: 20100822, end: 20100828
  8. REGORAFENIB [Suspect]
     Indication: COLON CANCER
     Dosage: 160 MG, QD
     Route: 048
     Dates: start: 20100905, end: 20100909
  9. REGORAFENIB [Suspect]
     Indication: COLON CANCER
     Dosage: 160 MG, QD
     Route: 048
     Dates: start: 20100911, end: 20100911
  10. REGORAFENIB [Suspect]
     Indication: COLON CANCER
     Dosage: 160 MG, QD
     Route: 048
     Dates: start: 20100919, end: 20100925
  11. REGORAFENIB [Suspect]
     Indication: COLON CANCER
     Dosage: 160 MG, QD
     Route: 048
     Dates: start: 20101003, end: 20101009
  12. REGORAFENIB [Suspect]
     Indication: COLON CANCER
     Dosage: 160 MG, QD
     Route: 048
     Dates: start: 20101017, end: 20101023
  13. REGORAFENIB [Suspect]
     Indication: COLON CANCER
     Dosage: 160 MG, QD
     Route: 048
     Dates: start: 20101101, end: 20101107
  14. REGORAFENIB [Suspect]
     Indication: COLON CANCER
     Dosage: 160 MG, QD
     Route: 048
     Dates: start: 20101111, end: 20101201
  15. REGORAFENIB [Suspect]
     Indication: COLON CANCER
     Dosage: 160 MG, QD
     Route: 048
     Dates: start: 20101209, end: 20101229
  16. REGORAFENIB [Suspect]
     Indication: COLON CANCER
     Dosage: 120 MG, QD
     Route: 048
     Dates: start: 20110106, end: 20110120
  17. REGORAFENIB [Suspect]
     Indication: COLON CANCER
     Dosage: 80 MG, QD
     Route: 048
     Dates: start: 20110203, end: 20110223
  18. REGORAFENIB [Suspect]
     Indication: COLON CANCER
     Dosage: 80 MG, QD
     Route: 048
     Dates: start: 20110303, end: 20110319
  19. REGORAFENIB [Suspect]
     Indication: COLON CANCER
     Dosage: 80 MG, QD
     Route: 048
     Dates: start: 20110321, end: 20110323
  20. REGORAFENIB [Suspect]
     Indication: COLON CANCER
     Dosage: 80 MG, QD
     Route: 048
     Dates: start: 20110331, end: 20110420
  21. REGORAFENIB [Suspect]
     Indication: COLON CANCER
     Dosage: 80 MG, QD
     Route: 048
     Dates: start: 20110428, end: 20110518
  22. REGORAFENIB [Suspect]
     Indication: COLON CANCER
     Dosage: 80 MG, QD
     Route: 048
     Dates: start: 20110527, end: 20110615
  23. REGORAFENIB [Suspect]
     Indication: COLON CANCER
     Dosage: 80 MG, QD
     Route: 048
     Dates: start: 20110623, end: 20110713
  24. REGORAFENIB [Suspect]
     Indication: COLON CANCER
     Dosage: 80 MG, QD
     Route: 048
     Dates: start: 20110721, end: 20110802
  25. REGORAFENIB [Suspect]
     Indication: COLON CANCER
     Dosage: 80 MG, QD
     Route: 048
     Dates: start: 20110804, end: 20110810
  26. REGORAFENIB [Suspect]
     Indication: COLON CANCER
     Dosage: 80 MG, QD
     Route: 048
     Dates: start: 20110818, end: 20110907
  27. REGORAFENIB [Suspect]
     Indication: COLON CANCER
     Dosage: 80 MG, QD
     Route: 048
     Dates: start: 20110915, end: 20110924
  28. REGORAFENIB [Suspect]
     Indication: COLON CANCER
     Dosage: 80 MG, QD
     Route: 048
     Dates: start: 20110926, end: 20111005
  29. OXALIPLATIN [Suspect]
     Indication: COLON CANCER
     Dosage: UNK UNK, QD
     Route: 042
     Dates: start: 20100526, end: 20100526
  30. OXALIPLATIN [Suspect]
     Indication: COLON CANCER
     Dosage: 85 MG/M2, QD
     Route: 042
     Dates: start: 20100609, end: 20100609
  31. OXALIPLATIN [Suspect]
     Indication: COLON CANCER
     Dosage: 85 MG/M2, QD
     Route: 042
     Dates: start: 20100623, end: 20100623
  32. OXALIPLATIN [Suspect]
     Indication: COLON CANCER
     Dosage: 85 MG/M2, QD
     Route: 042
     Dates: start: 20100707, end: 20100707
  33. OXALIPLATIN [Suspect]
     Indication: COLON CANCER
     Dosage: 85 MG/M2, QD
     Route: 042
     Dates: start: 20100722, end: 20100722
  34. OXALIPLATIN [Suspect]
     Indication: COLON CANCER
     Dosage: 85 MG/M2, QD
     Route: 042
     Dates: start: 20100805, end: 20100805
  35. OXALIPLATIN [Suspect]
     Indication: COLON CANCER
     Dosage: 65 MG/M2, QD
     Route: 042
     Dates: start: 20100819, end: 20100819
  36. OXALIPLATIN [Suspect]
     Indication: COLON CANCER
     Dosage: 65 MG/M2, QD
     Route: 042
     Dates: start: 20100902, end: 20100902
  37. OXALIPLATIN [Suspect]
     Indication: COLON CANCER
     Dosage: 65 MG/M2, QD
     Route: 042
     Dates: start: 20100916, end: 20100916
  38. OXALIPLATIN [Suspect]
     Indication: COLON CANCER
     Dosage: 65 MG/M2, QD
     Route: 042
     Dates: start: 20100930, end: 20100930
  39. OXALIPLATIN [Suspect]
     Indication: COLON CANCER
     Dosage: 65 MG/M2, QD
     Route: 042
     Dates: start: 20101014, end: 20101014
  40. OXALIPLATIN [Suspect]
     Indication: COLON CANCER
     Dosage: 65 MG/M2, QD
     Route: 042
     Dates: start: 20101028, end: 20101028
  41. 5-FLUOROURACIL [Suspect]
     Indication: COLON CANCER
     Dosage: 400 MG/M2, QD
     Route: 040
     Dates: start: 20100526, end: 20100526
  42. 5-FLUOROURACIL [Suspect]
     Indication: COLON CANCER
     Dosage: 400 MG/M2, QD
     Route: 040
     Dates: start: 20100609, end: 20100609
  43. 5-FLUOROURACIL [Suspect]
     Indication: COLON CANCER
     Dosage: 400 MG/M2, QD
     Route: 040
     Dates: start: 20100623, end: 20100623
  44. 5-FLUOROURACIL [Suspect]
     Indication: COLON CANCER
     Dosage: 400 MG/M2, QD
     Route: 040
     Dates: start: 20100707, end: 20100707
  45. 5-FLUOROURACIL [Suspect]
     Indication: COLON CANCER
     Dosage: 400 MG/M2, QD
     Route: 040
     Dates: start: 20100722, end: 20100722
  46. 5-FLUOROURACIL [Suspect]
     Indication: COLON CANCER
     Dosage: 400 MG/M2, QD
     Route: 040
     Dates: start: 20100805, end: 20100805
  47. 5-FLUOROURACIL [Suspect]
     Indication: COLON CANCER
     Dosage: 320 MG/M2, QD
     Route: 040
     Dates: start: 20100819, end: 20100819
  48. 5-FLUOROURACIL [Suspect]
     Indication: COLON CANCER
     Dosage: 320 MG/M2, QD
     Route: 040
     Dates: start: 20100902, end: 20100902
  49. 5-FLUOROURACIL [Suspect]
     Indication: COLON CANCER
     Dosage: 320 MG/M2, QD
     Route: 040
     Dates: start: 20100916, end: 20100916
  50. 5-FLUOROURACIL [Suspect]
     Indication: COLON CANCER
     Dosage: 320 MG/M2, QD
     Route: 040
     Dates: start: 20100930, end: 20100930
  51. 5-FLUOROURACIL [Suspect]
     Indication: COLON CANCER
     Dosage: 320 MG/M2, QD
     Route: 040
     Dates: start: 20101014, end: 20101014
  52. 5-FLUOROURACIL [Suspect]
     Indication: COLON CANCER
     Dosage: 320 MG/M2, QD
     Route: 040
     Dates: start: 20101028, end: 20101028
  53. CALCIUM FOLINATE [Suspect]
     Indication: COLON CANCER
     Dosage: UNK UNK, 2 HR IV INFUSION
     Route: 042
     Dates: start: 20100526, end: 20100526
  54. CALCIUM FOLINATE [Suspect]
     Indication: COLON CANCER
     Dosage: 400 MG/M2, 2 HR IV INFUSION
     Route: 042
     Dates: start: 20100609, end: 20100609
  55. CALCIUM FOLINATE [Suspect]
     Indication: COLON CANCER
     Dosage: 400 MG/M2, 2 HR IV INFUSION
     Route: 042
     Dates: start: 20100623, end: 20100623
  56. CALCIUM FOLINATE [Suspect]
     Indication: COLON CANCER
     Dosage: 400 MG/M2, 2 HR IV INFUSION
     Route: 042
     Dates: start: 20100707, end: 20100707
  57. CALCIUM FOLINATE [Suspect]
     Indication: COLON CANCER
     Dosage: 400 MG/M2, 2 HR IV INFUSION
     Route: 042
     Dates: start: 20100722, end: 20100722
  58. CALCIUM FOLINATE [Suspect]
     Indication: COLON CANCER
     Dosage: 400 MG/M2, 2 HR IV INFUSION
     Route: 042
     Dates: start: 20100805, end: 20100805
  59. CALCIUM FOLINATE [Suspect]
     Indication: COLON CANCER
     Dosage: 400 MG/M2, 2 HR IV INFUSION
     Route: 042
     Dates: start: 20100819, end: 20100819
  60. CALCIUM FOLINATE [Suspect]
     Indication: COLON CANCER
     Dosage: 400 MG/M2, 2 HR IV INFUSION
     Route: 042
     Dates: start: 20100902, end: 20100902
  61. CALCIUM FOLINATE [Suspect]
     Indication: COLON CANCER
     Dosage: 400 MG/M2, 2 HR IV INFUSION
     Route: 042
     Dates: start: 20100916, end: 20100916
  62. CALCIUM FOLINATE [Suspect]
     Indication: COLON CANCER
     Dosage: 400 MG/M2, 2 HR IV INFUSION
     Route: 042
     Dates: start: 20100930, end: 20100930
  63. CALCIUM FOLINATE [Suspect]
     Indication: COLON CANCER
     Dosage: 400 MG/M2, 2 HR IV INFUSION
     Route: 042
     Dates: start: 20101014, end: 20101014
  64. CALCIUM FOLINATE [Suspect]
     Indication: COLON CANCER
     Dosage: 400 MG/M2, 2 HR IV INFUSION
     Route: 042
     Dates: start: 20101028, end: 20101028
  65. ADDITIONAL STUDY MEDICATION [Suspect]
     Indication: COLON CANCER
  66. BIFITERAL [Concomitant]
     Indication: CONSTIPATION
     Dosage: UNK UNK, PRN
     Route: 048
     Dates: start: 20110427, end: 20111011
  67. ENALAPRIL [Concomitant]
     Indication: HYPERTENSION
     Dosage: 10 MG, TOTAL DAILY DOSE
     Route: 048
     Dates: start: 20110930, end: 20111011

REACTIONS (1)
  - Tachycardia paroxysmal [Recovering/Resolving]
